FAERS Safety Report 15573883 (Version 1)
Quarter: 2018Q4

REPORT INFORMATION
  Report Type: Report from Study
  Country: None (occurrence: RO)
  Receive Date: 20181101
  Receipt Date: 20181101
  Transmission Date: 20190205
  Serious: Yes (Hospitalization)
  Sender: FDA-Public Use
  Company Number: RO-ABBVIE-18K-135-2534494-00

PATIENT
  Sex: Female

DRUGS (5)
  1. MEDROL [Concomitant]
     Active Substance: METHYLPREDNISOLONE
     Indication: HAEMATOCHEZIA
     Route: 048
     Dates: start: 20181010
  2. SALOFALK [Concomitant]
     Active Substance: MESALAMINE
     Indication: DIARRHOEA
     Route: 048
  3. HUMIRA [Suspect]
     Active Substance: ADALIMUMAB
     Indication: COLITIS ULCERATIVE
     Route: 058
     Dates: start: 20140716, end: 20181008
  4. OMEGA 3 [Concomitant]
     Active Substance: OMEGA-3 FATTY ACIDS
     Indication: MUSCLE SPASMS
     Route: 048
  5. VITAMIN E [Concomitant]
     Active Substance: .ALPHA.-TOCOPHEROL
     Indication: MUSCLE SPASMS
     Route: 048

REACTIONS (8)
  - Leukocytosis [Not Recovered/Not Resolved]
  - Abnormal faeces [Recovered/Resolved]
  - Red blood cell count increased [Not Recovered/Not Resolved]
  - Inflammation [Recovered/Resolved]
  - Hyperfibrinogenaemia [Recovered/Resolved]
  - Hypochromic anaemia [Not Recovered/Not Resolved]
  - Colitis [Recovering/Resolving]
  - Hyposideraemia [Not Recovered/Not Resolved]
